FAERS Safety Report 13697029 (Version 1)
Quarter: 2017Q2

REPORT INFORMATION
  Report Type: Spontaneous
  Country: US (occurrence: US)
  Receive Date: 20170627
  Receipt Date: 20170627
  Transmission Date: 20170830
  Serious: No
  Sender: FDA-Public Use
  Company Number: None

PATIENT
  Age: 52 Year
  Sex: Female
  Weight: 81 kg

DRUGS (5)
  1. IBUPROFEN. [Concomitant]
     Active Substance: IBUPROFEN
  2. TRAMADOL. [Concomitant]
     Active Substance: TRAMADOL
  3. ESTRADIOL. [Concomitant]
     Active Substance: ESTRADIOL
  4. BACLOFEN. [Concomitant]
     Active Substance: BACLOFEN
  5. BARIUM FOR SWALLOW [Suspect]
     Active Substance: BARIUM SULFATE
     Indication: LABORATORY TEST
     Dates: start: 20170615

REACTIONS (6)
  - Headache [None]
  - Nausea [None]
  - Diarrhoea [None]
  - Dizziness [None]
  - Abdominal pain upper [None]
  - Vomiting [None]

NARRATIVE: CASE EVENT DATE: 20170615
